FAERS Safety Report 12610334 (Version 2)
Quarter: 2018Q3

REPORT INFORMATION
  Report Type: Spontaneous
  Country: JP (occurrence: JP)
  Receive Date: 20160801
  Receipt Date: 20180907
  Transmission Date: 20181010
  Serious: Yes (Hospitalization, Other)
  Sender: FDA-Public Use
  Company Number: JP-JNJFOC-20160722500

PATIENT
  Age: 47 Year
  Sex: Male

DRUGS (3)
  1. RIUP X5 [Suspect]
     Active Substance: MINOXIDIL
     Route: 048
  2. RIUP X5 [Suspect]
     Active Substance: MINOXIDIL
     Indication: PRODUCT USED FOR UNKNOWN INDICATION
     Dosage: APPROXIMATELY 60 ML (EQUALING 3,000 MG)
     Route: 048
  3. IBUPROFEN W/PARACETAMOL [Concomitant]
     Indication: HEADACHE
     Route: 065

REACTIONS (12)
  - Epigastric discomfort [Unknown]
  - Dizziness [Unknown]
  - Drug administration error [Unknown]
  - Acute kidney injury [Unknown]
  - Suicide attempt [Unknown]
  - Nausea [Unknown]
  - Hypotension [Recovered/Resolved]
  - Discoloured vomit [Unknown]
  - Road traffic accident [Unknown]
  - Overdose [Unknown]
  - Toxicity to various agents [Unknown]
  - Dehydration [Unknown]
